FAERS Safety Report 24032341 (Version 1)
Quarter: 2024Q2

REPORT INFORMATION
  Report Type: Spontaneous
  Country: TW (occurrence: TW)
  Receive Date: 20240630
  Receipt Date: 20240630
  Transmission Date: 20240716
  Serious: Yes (Hospitalization)
  Sender: FDA-Public Use
  Company Number: TW-MTPC-MTPC2024-0012398

PATIENT
  Age: 55 Year
  Sex: Female

DRUGS (1)
  1. REMICADE [Suspect]
     Active Substance: INFLIXIMAB
     Indication: Crohn^s disease
     Dosage: 5MG/KG LOADING DOSE (0`2`6 WEEK S) THEN EVERY 8 WEEKS
     Route: 041
     Dates: start: 20240422

REACTIONS (4)
  - Stoma site abscess [Unknown]
  - Stoma site haemorrhage [Unknown]
  - Pyrexia [Unknown]
  - Infection [Unknown]

NARRATIVE: CASE EVENT DATE: 20240610
